FAERS Safety Report 10902222 (Version 2)
Quarter: 2015Q1

REPORT INFORMATION
  Report Type: Spontaneous
  Country: AR (occurrence: AR)
  Receive Date: 20150310
  Receipt Date: 20150326
  Transmission Date: 20150721
  Serious: Yes (Hospitalization)
  Sender: FDA-Public Use
  Company Number: PHHY2015AR028679

PATIENT
  Age: 26 Year
  Sex: Female

DRUGS (3)
  1. TRILEPTAL [Suspect]
     Active Substance: OXCARBAZEPINE
     Indication: EPILEPSY
     Dosage: UNK (600 AND 300 MG, UNSPECIFIED FREQUENCY)
     Route: 048
     Dates: start: 2004, end: 201210
  2. KEPPRA [Concomitant]
     Active Substance: LEVETIRACETAM
     Indication: EPILEPSY
     Route: 048
  3. TRILEPTAL [Suspect]
     Active Substance: OXCARBAZEPINE
     Dosage: 1500 MG, QD
     Route: 048
     Dates: start: 201210

REACTIONS (5)
  - Malaise [Recovered/Resolved]
  - Seizure [Recovered/Resolved]
  - Peritonitis [Recovered/Resolved]
  - Daydreaming [Recovering/Resolving]
  - Headache [Not Recovered/Not Resolved]

NARRATIVE: CASE EVENT DATE: 201210
